FAERS Safety Report 4947202-3 (Version None)
Quarter: 2006Q1

REPORT INFORMATION
  Report Type: 
  Country: None (occurrence: None)
  Receive Date: 20060113
  Receipt Date: 20051015
  Transmission Date: 20060701
  Serious: No
  Sender: FDA-Public Use
  Company Number: 2005SP003546

PATIENT
  Age: 27 Year
  Sex: Female
  Weight: 56.6996 kg

DRUGS (3)
  1. LUNESTA [Suspect]
     Indication: INSOMNIA
     Dosage: 3 MG; HS; ORAL, 3 MG; ORAL
     Route: 048
     Dates: start: 20050101, end: 20051001
  2. LUNESTA [Suspect]
     Indication: INSOMNIA
     Dosage: 3 MG; HS; ORAL, 3 MG; ORAL
     Route: 048
     Dates: start: 20051001
  3. ZOLOFT [Concomitant]

REACTIONS (1)
  - PANIC ATTACK [None]
